FAERS Safety Report 7473124-2 (Version None)
Quarter: 2011Q2

REPORT INFORMATION
  Report Type: 
  Country: None (occurrence: None)
  Receive Date: 20110511
  Receipt Date: 20110505
  Transmission Date: 20111010
  Serious: Yes (Hospitalization)
  Sender: FDA-Public Use
  Company Number: GB-ROCHE-775617

PATIENT
  Age: 75 Year
  Sex: Female

DRUGS (8)
  1. AVASTIN [Suspect]
     Dosage: 1.25 MG/0.05ML
     Route: 031
     Dates: start: 20110408
  2. AMLODIPINE BESYLATE [Concomitant]
  3. AMITRIPTYLINE HCL [Concomitant]
  4. CITALOPRAM HYDROBROMIDE [Concomitant]
  5. ADCAL D3 [Concomitant]
  6. CLONAZEPAM [Concomitant]
  7. IRBESARTAN [Concomitant]
  8. ALENDRONATE SODIUM [Concomitant]

REACTIONS (1)
  - ENDOPHTHALMITIS [None]
